FAERS Safety Report 7324748-4 (Version None)
Quarter: 2011Q1

REPORT INFORMATION
  Report Type: 
  Country: None (occurrence: None)
  Receive Date: 20110301
  Receipt Date: 20110216
  Transmission Date: 20110831
  Serious: Yes (Hospitalization)
  Sender: FDA-Public Use
  Company Number: US-ELI_LILLY_AND_COMPANY-US201012004433

PATIENT
  Sex: Female

DRUGS (6)
  1. JANUVIA [Concomitant]
     Dosage: UNK, UNKNOWN
     Route: 065
  2. TOPROL-XL [Concomitant]
  3. METFORMIN [Concomitant]
     Dosage: UNK, UNKNOWN
     Route: 065
  4. FORTEO [Suspect]
     Indication: OSTEOPOROSIS
     Dosage: 20 UG, DAILY (1/D)
     Dates: start: 20100501
  5. LOSARTAN POTASSIUM [Concomitant]
  6. AMLODIPINE [Concomitant]

REACTIONS (9)
  - DYSPHAGIA [None]
  - ADVERSE DRUG REACTION [None]
  - GASTROOESOPHAGEAL REFLUX DISEASE [None]
  - VOMITING [None]
  - VISION BLURRED [None]
  - BLOOD PRESSURE INCREASED [None]
  - SWELLING [None]
  - ABDOMINAL PAIN UPPER [None]
  - HEADACHE [None]
